FAERS Safety Report 12067693 (Version 1)
Quarter: 2016Q1

REPORT INFORMATION
  Report Type: Report from Study
  Country: US (occurrence: US)
  Receive Date: 20160211
  Receipt Date: 20160211
  Transmission Date: 20160526
  Serious: Yes (Hospitalization, Other)
  Sender: FDA-Public Use
  Company Number: US-BAYER-2015-429536

PATIENT
  Age: 80 Year
  Sex: Male
  Weight: 94.79 kg

DRUGS (7)
  1. ADEMPAS [Suspect]
     Active Substance: RIOCIGUAT
     Indication: PULMONARY ARTERIAL HYPERTENSION
     Dosage: 1.5 MG, TID
     Route: 048
  2. ADEMPAS [Suspect]
     Active Substance: RIOCIGUAT
     Indication: PULMONARY ARTERIAL HYPERTENSION
     Dosage: 0.5 MG, TID
     Route: 048
  3. ADEMPAS [Suspect]
     Active Substance: RIOCIGUAT
     Indication: PULMONARY ARTERIAL HYPERTENSION
     Dosage: 1.5 MG, TID
     Route: 048
     Dates: start: 20151009
  4. PIRFENIDONE [Concomitant]
     Active Substance: PIRFENIDONE
  5. ADEMPAS [Suspect]
     Active Substance: RIOCIGUAT
     Indication: PULMONARY ARTERIAL HYPERTENSION
     Dosage: 2 MG, TID
     Route: 048
  6. ADEMPAS [Suspect]
     Active Substance: RIOCIGUAT
     Indication: PULMONARY ARTERIAL HYPERTENSION
     Dosage: UNK
     Route: 048
     Dates: start: 20150915
  7. ADEMPAS [Suspect]
     Active Substance: RIOCIGUAT
     Indication: PULMONARY ARTERIAL HYPERTENSION
     Dosage: UNK
     Dates: start: 20151009

REACTIONS (12)
  - Nausea [Unknown]
  - Heart rate irregular [Recovered/Resolved]
  - Blood pressure decreased [Recovering/Resolving]
  - Vomiting [None]
  - Dehydration [None]
  - Malaise [Unknown]
  - Heart rate irregular [Unknown]
  - Pneumothorax [Unknown]
  - Urine output decreased [Unknown]
  - Fluid intake reduced [Unknown]
  - Hospitalisation [Unknown]
  - Hypophagia [Unknown]

NARRATIVE: CASE EVENT DATE: 20160128
